FAERS Safety Report 4466725-7 (Version None)
Quarter: 2004Q4

REPORT INFORMATION
  Report Type: 
  Country: None (occurrence: None)
  Receive Date: 20041001
  Receipt Date: 20041001
  Transmission Date: 20050328
  Serious: Yes (Hospitalization)
  Sender: FDA-Public Use
  Company Number: None

PATIENT
  Sex: Female
  Weight: 79.3795 kg

DRUGS (1)
  1. VIOXX [Suspect]
     Dosage: 1 DAILY

REACTIONS (2)
  - DIZZINESS [None]
  - PALPITATIONS [None]
